FAERS Safety Report 18526030 (Version 1)
Quarter: 2020Q4

REPORT INFORMATION
  Report Type: Spontaneous
  Country: HR (occurrence: HR)
  Receive Date: 20201120
  Receipt Date: 20201120
  Transmission Date: 20210114
  Serious: Yes (Hospitalization, Other)
  Sender: FDA-Public Use
  Company Number: HR-TEVA-2020-HR-1850487

PATIENT
  Age: 84 Year
  Sex: Male
  Weight: 70 kg

DRUGS (19)
  1. ACETYLSALICYLIC ACID [Suspect]
     Active Substance: ASPIRIN
     Indication: PRODUCT USED FOR UNKNOWN INDICATION
     Dosage: 100 MILLIGRAM DAILY; THERAPY START DATE AND END DATE: ASKED BUT UNKNOWN
     Route: 065
  2. ENTRESTO [Suspect]
     Active Substance: SACUBITRIL\VALSARTAN
     Indication: CARDIAC FAILURE CHRONIC
     Dosage: 2 DOSAGE FORMS DAILY; (49/51 MG), THERAPY START DATE AND END DATE: ASKED BUT UNKNOWN
     Route: 065
  3. ENTRESTO [Suspect]
     Active Substance: SACUBITRIL\VALSARTAN
     Dosage: 2 DOSAGE FORMS DAILY;   (97/103 MG), THERAPY START DATE AND END DATE: ASKED BUT UNKNOWN
     Route: 065
  4. ALPRAZOLAM. [Suspect]
     Active Substance: ALPRAZOLAM
     Indication: PRODUCT USED FOR UNKNOWN INDICATION
     Dosage: UNK, THERAPY START DATE AND END DATE: ASKED BUT UNKNOWN
     Route: 065
  5. DIGOXIN. [Suspect]
     Active Substance: DIGOXIN
     Indication: PRODUCT USED FOR UNKNOWN INDICATION
     Dosage: THERAPY START DATE AND END DATE: ASKED BUT UNKNOWN
     Route: 065
  6. ROSUVASTATIN. [Suspect]
     Active Substance: ROSUVASTATIN
     Indication: PRODUCT USED FOR UNKNOWN INDICATION
     Dosage: 20 MILLIGRAM DAILY; THERAPY START DATE AND END DATE: ASKED BUT UNKNOWN
     Route: 065
  7. METILDIGOXIN [Suspect]
     Active Substance: METILDIGOXIN
     Indication: PRODUCT USED FOR UNKNOWN INDICATION
     Dosage: 1 MILLIGRAM DAILY;  THERAPY START DATE AND END DATE: ASKED BUT UNKNOWN
     Route: 065
  8. TAMSULOSIN HYDROCHLORIDE. [Suspect]
     Active Substance: TAMSULOSIN HYDROCHLORIDE
     Indication: PRODUCT USED FOR UNKNOWN INDICATION
     Dosage: 1 DOSAGE FORMS DAILY; THERAPY START DATE AND END DATE: ASKED BUT UNKNOWN
     Route: 065
  9. BISOPROLOL SALT NOT SPECIFIED [Suspect]
     Active Substance: BISOPROLOL
     Indication: PRODUCT USED FOR UNKNOWN INDICATION
     Dosage: UNK , BID, THERAPY START DATE AND END DATE: ASKED BUT UNKNOWN
     Route: 065
  10. BISOPROLOL SALT NOT SPECIFIED [Suspect]
     Active Substance: BISOPROLOL
     Dosage: 5 MG MORNING, 2.5 MG EVENING, THERAPY START DATE AND END DATE: ASKED BUT UNKNOWN
     Route: 065
  11. CLOPIDOGREL BISULFATE. [Suspect]
     Active Substance: CLOPIDOGREL BISULFATE
     Indication: PRODUCT USED FOR UNKNOWN INDICATION
     Dosage: 75 MILLIGRAM DAILY;  THERAPY START DATE AND END DATE: ASKED BUT UNKNOWN
     Route: 065
  12. METILDIGOXIN [Suspect]
     Active Substance: METILDIGOXIN
     Dosage: 1 DOSAGE FORMS DAILY; THERAPY START DATE AND END DATE: ASKED BUT UNKNOWN
     Route: 065
  13. EPLERENONE. [Suspect]
     Active Substance: EPLERENONE
     Indication: PRODUCT USED FOR UNKNOWN INDICATION
     Dosage: 50 MILLIGRAM DAILY;  THERAPY START DATE AND END DATE: ASKED BUT UNKNOWN
     Route: 065
  14. ENTRESTO [Suspect]
     Active Substance: SACUBITRIL\VALSARTAN
     Dosage: 2 DOSAGE FORMS DAILY; (49/51 MG), THERAPY START DATE AND END DATE: ASKED BUT UNKNOWN
     Route: 065
  15. WARFARIN SODIUM. [Suspect]
     Active Substance: WARFARIN SODIUM
     Indication: PRODUCT USED FOR UNKNOWN INDICATION
     Dosage: WITH TARGET INR 2-3, THERAPY START DATE AND END DATE: ASKED BUT UNKNOWN
     Route: 065
  16. FUROSEMIDE. [Suspect]
     Active Substance: FUROSEMIDE
     Indication: PRODUCT USED FOR UNKNOWN INDICATION
     Dosage: 40 MILLIGRAM DAILY;  THERAPY START DATE AND END DATE: ASKED BUT UNKNOWN
     Route: 048
  17. POTASSIUM CITRATE. [Suspect]
     Active Substance: POTASSIUM CITRATE
     Indication: PRODUCT USED FOR UNKNOWN INDICATION
     Dosage: .5 DOSAGE FORMS DAILY;  THERAPY START DATE AND END DATE: ASKED BUT UNKNOWN
     Route: 065
  18. BISOPROLOL SALT NOT SPECIFIED [Suspect]
     Active Substance: BISOPROLOL
     Dosage: 10 MILLIGRAM DAILY; THERAPY START DATE AND END DATE: ASKED BUT UNKNOWN
     Route: 065
  19. ENTRESTO [Suspect]
     Active Substance: SACUBITRIL\VALSARTAN
     Dosage: 2 DOSAGE FORMS DAILY;  (97/103 MG), THERAPY START DATE AND END DATE: ASKED BUT UNKNOWN
     Route: 065

REACTIONS (7)
  - Aortic stenosis [Unknown]
  - Tachycardia [Unknown]
  - Cardiac failure chronic [Unknown]
  - N-terminal prohormone brain natriuretic peptide increased [Unknown]
  - Chronic kidney disease [Unknown]
  - Dyspnoea [Unknown]
  - Pleural effusion [Unknown]

NARRATIVE: CASE EVENT DATE: 20180903
